FAERS Safety Report 5715742-5 (Version None)
Quarter: 2008Q2

REPORT INFORMATION
  Report Type: 
  Country: None (occurrence: None)
  Receive Date: 20080424
  Receipt Date: 20080416
  Transmission Date: 20081010
  Serious: Yes (Other)
  Sender: FDA-Public Use
  Company Number: JP-BRISTOL-MYERS SQUIBB COMPANY-14160014

PATIENT
  Age: 46 Year
  Sex: Male
  Weight: 51 kg

DRUGS (9)
  1. ABILIFY [Suspect]
     Indication: SCHIZOPHRENIA
     Dosage: 6AUG07-12AUG07:6MG QD,13AUG07-26AUG07:6MG BID
     Route: 048
     Dates: start: 20070827, end: 20070902
  2. LANSOPRAZOLE [Concomitant]
     Dosage: DOSE FORM=CAPSULE
     Dates: end: 20070902
  3. MAGNESIUM [Concomitant]
     Dates: end: 20070920
  4. BIPERIDEN HYDROCHLORIDE TAB [Concomitant]
  5. NITRAZEPAM [Concomitant]
  6. GLYSENNID [Concomitant]
  7. RIVOTRIL [Concomitant]
     Dates: start: 20070718
  8. LAXOBERON [Concomitant]
     Dosage: DOSE FORM=LIQUID
     Dates: start: 20070718
  9. ZYPREXA [Concomitant]
     Dosage: DOSE FORM=TABLET
     Dates: start: 20070719, end: 20070911

REACTIONS (2)
  - NEGATIVISM [None]
  - SOMATIC HALLUCINATION [None]
